FAERS Safety Report 24054256 (Version 3)
Quarter: 2024Q3

REPORT INFORMATION
  Report Type: Spontaneous
  Country: US (occurrence: US)
  Receive Date: 20240705
  Receipt Date: 20240827
  Transmission Date: 20241017
  Serious: Yes (Hospitalization, Other)
  Sender: AUROBINDO
  Company Number: US-MLMSERVICE-20240621-PI105671-00232-1

PATIENT
  Age: 76 Year
  Sex: Female

DRUGS (4)
  1. MYCOPHENOLIC ACID [Suspect]
     Active Substance: MYCOPHENOLIC ACID
     Indication: Immunosuppressant drug therapy
     Dosage: UNK
     Route: 065
  2. OMEPRAZOLE [Suspect]
     Active Substance: OMEPRAZOLE
     Indication: Product used for unknown indication
     Dosage: UNK UNK, (HIGH  DOSE) TWO TIMES A DAY
     Route: 065
  3. SUCRALFATE [Suspect]
     Active Substance: SUCRALFATE
     Indication: Product used for unknown indication
     Dosage: UNK UNK, TWO TIMES A DAY
     Route: 065
  4. SIROLIMUS [Concomitant]
     Active Substance: SIROLIMUS
     Indication: Product used for unknown indication
     Dosage: UNK
     Route: 065

REACTIONS (5)
  - Haematemesis [Unknown]
  - Drug ineffective [Unknown]
  - Diverticulum oesophageal [Not Recovered/Not Resolved]
  - Weight decreased [Unknown]
  - Oesophagitis ulcerative [Recovered/Resolved]
